FAERS Safety Report 18792104 (Version 1)
Quarter: 2021Q1

REPORT INFORMATION
  Report Type: Other
  Country: IT (occurrence: IT)
  Receive Date: 20210127
  Receipt Date: 20210127
  Transmission Date: 20210419
  Serious: Yes (Hospitalization)
  Sender: FDA-Public Use
  Company Number: IT-ORCHID HEALTHCARE-2105868

PATIENT
  Age: 57 Year
  Sex: Female

DRUGS (1)
  1. OLANZAPINE. [Suspect]
     Active Substance: OLANZAPINE
     Indication: SCHIZOPHRENIA
     Route: 065

REACTIONS (6)
  - Portal vein thrombosis [Recovering/Resolving]
  - Acute kidney injury [Recovering/Resolving]
  - Mesenteric vein thrombosis [Recovering/Resolving]
  - Weight increased [Recovering/Resolving]
  - Systemic infection [Recovering/Resolving]
  - Lethargy [Recovering/Resolving]
